FAERS Safety Report 7720022-2 (Version None)
Quarter: 2011Q3

REPORT INFORMATION
  Report Type: 
  Country: None (occurrence: None)
  Receive Date: 20110831
  Receipt Date: 20110824
  Transmission Date: 20111222
  Serious: Yes (Hospitalization, Other)
  Sender: FDA-Public Use
  Company Number: JP-BRISTOL-MYERS SQUIBB COMPANY-15644271

PATIENT
  Age: 44 Year
  Sex: Male

DRUGS (7)
  1. NORVIR [Suspect]
     Indication: HIV INFECTION
     Dosage: NORVIR SOFT CAPS
     Route: 048
     Dates: start: 20100108, end: 20100121
  2. TRUVADA [Suspect]
     Indication: HIV INFECTION
     Dosage: TAB
     Route: 048
     Dates: start: 20100108, end: 20100121
  3. ZERIT [Suspect]
     Indication: HIV INFECTION
     Route: 048
     Dates: start: 20100128, end: 20100207
  4. LOPERAMIDE HCL [Concomitant]
     Indication: DIARRHOEA
     Route: 048
     Dates: start: 20100108, end: 20100127
  5. STOCRIN TABS 600 MG [Suspect]
     Indication: HIV INFECTION
     Route: 048
     Dates: start: 20100128, end: 20100207
  6. EPIVIR [Suspect]
     Indication: HIV INFECTION
     Dosage: TABS
     Route: 048
     Dates: start: 20100128, end: 20100207
  7. DARUNAVIR [Suspect]
     Indication: HIV INFECTION
     Dosage: PREZISTANAIVE TABS
     Route: 048
     Dates: start: 20100108, end: 20100121

REACTIONS (3)
  - HEPATIC FUNCTION ABNORMAL [None]
  - RASH [None]
  - PLATELET COUNT DECREASED [None]
